FAERS Safety Report 8733340 (Version 2)
Quarter: 2012Q4

REPORT INFORMATION
  Report Type: 
  Country: CA (occurrence: CA)
  Receive Date: 20120821
  Receipt Date: 20120904
  Transmission Date: 20130627
  Serious: Yes (Death, Hospitalization, Other)
  Sender: FDA-Public Use
  Company Number: CA-GENZYME-THYM-1003381

PATIENT
  Age: 66 None
  Sex: Female
  Weight: 115 kg

DRUGS (6)
  1. THYMOGLOBULIN [Suspect]
     Indication: PROPHYLAXIS AGAINST GRAFT VERSUS HOST DISEASE
     Dosage: 0.5 mg/kg, qd
     Route: 042
     Dates: start: 20110415, end: 20110415
  2. THYMOGLOBULIN [Suspect]
     Dosage: 2 mg/kg, qd
     Route: 042
     Dates: start: 20110416, end: 20110416
  3. THYMOGLOBULIN [Suspect]
     Dosage: 2 mg/kg, qd
     Route: 042
     Dates: start: 20110419, end: 20110419
  4. CYCLOSPORINE [Concomitant]
     Indication: PRODUCT USED FOR UNKNOWN INDICATION
     Dosage: UNK
     Route: 065
  5. GANCICLOVIR [Concomitant]
     Indication: PRODUCT USED FOR UNKNOWN INDICATION
     Dosage: UNK
     Route: 065
  6. VORICONAZOLE [Concomitant]
     Indication: PRODUCT USED FOR UNKNOWN INDICATION
     Dosage: UNK
     Route: 065

REACTIONS (3)
  - Multi-organ failure [Fatal]
  - Cytomegalovirus viraemia [Fatal]
  - Bronchopulmonary aspergillosis [Fatal]
